FAERS Safety Report 7478089-5 (Version None)
Quarter: 2011Q2

REPORT INFORMATION
  Report Type: 
  Country: None (occurrence: None)
  Receive Date: 20110513
  Receipt Date: 20110509
  Transmission Date: 20111010
  Serious: Yes (Other)
  Sender: FDA-Public Use
  Company Number: FR-SANOFI-AVENTIS-2011SA029132

PATIENT
  Age: 67 Year
  Sex: Male

DRUGS (3)
  1. SIMVASTATIN [Concomitant]
  2. PLAVIX [Suspect]
     Route: 048
     Dates: start: 20110301, end: 20110401
  3. ASPIRIN [Suspect]
     Route: 048
     Dates: start: 20050101, end: 20110101

REACTIONS (1)
  - FIXED ERUPTION [None]
